FAERS Safety Report 9911189 (Version 3)
Quarter: 2014Q1

REPORT INFORMATION
  Report Type: Spontaneous
  Country: ES (occurrence: ES)
  Receive Date: 20140219
  Receipt Date: 20140314
  Transmission Date: 20141002
  Serious: Yes (Other)
  Sender: FDA-Public Use
  Company Number: ES-VERTEX PHARMACEUTICALS INC-2014-000856

PATIENT
  Age: 54 Year
  Sex: Male
  Weight: 56 kg

DRUGS (3)
  1. INCIVO [Suspect]
     Indication: HEPATITIS C
     Dosage: 1125 MG, BID
     Route: 048
     Dates: start: 20130906, end: 20131129
  2. RIBAVIRIN [Suspect]
     Indication: HEPATITIS C
     Dosage: WITHDRAWN AT WEEK 14 REPORTED AS 400-0-600MG
     Route: 048
     Dates: start: 20130802, end: 20131212
  3. INTERFERON [Suspect]
     Indication: HEPATITIS C
     Dosage: WITHDRAWN AT WEEK 14
     Route: 058
     Dates: start: 20130802, end: 20131212

REACTIONS (5)
  - Cholelithiasis [Recovered/Resolved]
  - Drug-induced liver injury [Unknown]
  - Anaemia [Recovered/Resolved]
  - Hypoalbuminaemia [Unknown]
  - Proteinuria [Unknown]
